FAERS Safety Report 5158140-8 (Version None)
Quarter: 2006Q4

REPORT INFORMATION
  Report Type: 
  Country: None (occurrence: None)
  Receive Date: 20061120
  Receipt Date: 20061120
  Transmission Date: 20070319
  Serious: Yes (Death)
  Sender: FDA-Public Use
  Company Number: None

PATIENT
  Age: 62 Year
  Sex: Female
  Weight: 88 kg

DRUGS (2)
  1. RITUXAN [Suspect]
     Indication: LYMPHOMA
  2. CHOP [Concomitant]

REACTIONS (7)
  - ABDOMINAL PAIN [None]
  - ALVEOLITIS ALLERGIC [None]
  - BLOOD PRESSURE INCREASED [None]
  - CHILLS [None]
  - HAEMOPTYSIS [None]
  - IDIOPATHIC PULMONARY FIBROSIS [None]
  - RESPIRATORY FAILURE [None]
